FAERS Safety Report 6305102-0 (Version None)
Quarter: 2009Q3

REPORT INFORMATION
  Report Type: 
  Country: None (occurrence: None)
  Receive Date: 20090811
  Receipt Date: 20090731
  Transmission Date: 20100115
  Serious: Yes (Other)
  Sender: FDA-Public Use
  Company Number: US-PFIZER INC-2009249422

PATIENT
  Sex: Female
  Weight: 103.86 kg

DRUGS (6)
  1. PROVERA [Suspect]
     Indication: HORMONE REPLACEMENT THERAPY
     Dosage: 2.5 MG, 1X/DAY
     Route: 048
     Dates: start: 19920701, end: 19950123
  2. PREMARIN [Suspect]
     Indication: HORMONE REPLACEMENT THERAPY
     Dosage: 0.3 MG, 1X/DAY
     Dates: start: 19920701, end: 19940304
  3. PREMARIN [Suspect]
     Dosage: 0.625 MG, 1X/DAY
     Dates: start: 19940304, end: 19950123
  4. PREMPRO [Suspect]
     Indication: HORMONE REPLACEMENT THERAPY
  5. ESTROGENS [Suspect]
     Indication: HORMONE REPLACEMENT THERAPY
  6. PROVENTIL GENTLEHALER [Concomitant]
     Dosage: UNK

REACTIONS (1)
  - BREAST CANCER [None]
